FAERS Safety Report 9314132 (Version 1)
Quarter: 2013Q2

REPORT INFORMATION
  Report Type: Report from Study
  Country: TW (occurrence: TW)
  Receive Date: 20130529
  Receipt Date: 20130529
  Transmission Date: 20140414
  Serious: Yes (Hospitalization, Other)
  Sender: FDA-Public Use
  Company Number: PHHY2012TW001069

PATIENT
  Sex: Female
  Weight: 64.7 kg

DRUGS (25)
  1. ALISKIREN [Suspect]
     Indication: HYPERTENSION
     Dosage: 150 MG, QD
     Route: 048
     Dates: start: 20111102, end: 20111228
  2. GLUCOPHAGE [Concomitant]
     Indication: DIABETES MELLITUS
     Dosage: 1500 MG, QD
     Route: 048
     Dates: start: 20111102, end: 20111228
  3. NOVONORM [Concomitant]
     Indication: DIABETES MELLITUS
     Dosage: 6 MG, QD
     Route: 048
     Dates: start: 20111102, end: 20111228
  4. JANUVIA [Concomitant]
     Indication: DIABETES MELLITUS
     Dosage: 100 MG, QD
     Route: 048
     Dates: start: 20111102, end: 20111228
  5. LANTUS [Concomitant]
     Indication: DIABETES MELLITUS
     Dosage: 18 U, QD
     Route: 058
     Dates: start: 20111102, end: 20111228
  6. LANTUS [Concomitant]
     Dosage: 25 U
     Route: 058
     Dates: start: 20120109, end: 20120109
  7. LANTUS [Concomitant]
     Dosage: 27 U
     Route: 058
     Dates: start: 20120101, end: 20120118
  8. LANTUS [Concomitant]
     Dosage: 28 U
     Route: 058
     Dates: start: 20120118
  9. EXFORGE [Concomitant]
     Indication: HYPERTENSION
     Dosage: 1 DF, QD
     Route: 048
     Dates: start: 20111102, end: 20111228
  10. STILNOX [Concomitant]
     Indication: INSOMNIA
     Dosage: 5 MG, QD
     Route: 048
     Dates: start: 20111102, end: 20111228
  11. MOPRIDE [Concomitant]
     Indication: CONSTIPATION
     Dosage: 15 MG, QD
     Route: 048
     Dates: start: 20111205, end: 20111228
  12. TOPAAL [Concomitant]
     Indication: DUODENAL ULCER
     Dosage: 3 DF, QD
     Route: 048
     Dates: start: 20111205, end: 20111228
  13. STROCAIN [Concomitant]
     Indication: DUODENAL ULCER
     Dosage: 1 DF, QD
     Route: 048
     Dates: start: 20111205, end: 20111228
  14. NOVORAPID [Concomitant]
     Indication: DIABETES MELLITUS
     Dosage: 24 U, QD
     Route: 058
     Dates: start: 20111228, end: 20120104
  15. NOVORAPID [Concomitant]
     Dosage: 27 U
     Route: 058
     Dates: start: 20120104, end: 20120106
  16. NOVORAPID [Concomitant]
     Dosage: 30 U
     Route: 058
     Dates: start: 20120106, end: 20120111
  17. NOVORAPID [Concomitant]
     Dosage: 36 U
     Route: 058
     Dates: start: 20120111, end: 20120118
  18. NOVORAPID [Concomitant]
     Dosage: 39 U
     Route: 058
     Dates: start: 20120118
  19. LEVEMIR [Concomitant]
     Indication: DIABETES MELLITUS
     Dosage: 18 U, QD
     Route: 058
     Dates: start: 20111228, end: 20120104
  20. LEVEMIR [Concomitant]
     Dosage: 20 U
     Route: 058
     Dates: start: 20120104, end: 20120105
  21. LEVEMIR [Concomitant]
     Dosage: 18 U
     Route: 058
     Dates: start: 20120105, end: 20120106
  22. METHYLDOPA [Concomitant]
     Indication: HYPERTENSION
     Dosage: 500 MG
     Route: 048
     Dates: start: 20120105, end: 20120118
  23. SENNOSIDE [Concomitant]
     Indication: CONSTIPATION
     Dosage: 20 MG
     Route: 048
     Dates: start: 20120107, end: 20120118
  24. UTROGESTAN [Concomitant]
     Indication: ABORTION THREATENED
     Dosage: 5 DF, UNK
     Route: 048
     Dates: start: 20120109, end: 20120118
  25. MYCOMB CREAM [Concomitant]
     Indication: VAGINAL INFECTION
     Dosage: 6 G
     Dates: start: 20120119, end: 20120126

REACTIONS (6)
  - Hypertension [Recovered/Resolved with Sequelae]
  - Diabetes mellitus inadequate control [Recovered/Resolved with Sequelae]
  - Glycosylated haemoglobin increased [Recovered/Resolved with Sequelae]
  - Abortion spontaneous [Unknown]
  - Vaginal haemorrhage [Recovered/Resolved with Sequelae]
  - Exposure during pregnancy [Recovered/Resolved with Sequelae]
